FAERS Safety Report 6023904-5 (Version None)
Quarter: 2008Q4

REPORT INFORMATION
  Report Type: 
  Country: None (occurrence: None)
  Receive Date: 20081223
  Receipt Date: 20081209
  Transmission Date: 20090506
  Serious: Yes (Hospitalization)
  Sender: FDA-Public Use
  Company Number: 2008PL000277

PATIENT
  Age: 11 Month
  Sex: Male

DRUGS (17)
  1. LABETALOL HCL [Suspect]
     Indication: HYPERTENSION
     Dosage: 1,5 MG/KG;QD
  2. PREDNISOLONE [Concomitant]
  3. FUROSEMIDE [Concomitant]
  4. HYDROCHLOROTHIAZIDE [Concomitant]
  5. SPIRONOLACTONE [Concomitant]
  6. PENICILLIN V /00001801/ [Concomitant]
  7. IMMUNE GLOBULIN INTRAVENOUS (HUMAN) [Concomitant]
  8. LOSARTAN [Concomitant]
  9. RAMIPRIL [Concomitant]
  10. AMLODIPINE [Concomitant]
  11. MINOXIDIL [Concomitant]
  12. NIFEDIPINE [Concomitant]
  13. ENOXAPARIN SODIUM [Concomitant]
  14. CYCLOSPORINE [Concomitant]
  15. MYCOPHENOLATE MOFETIL [Concomitant]
  16. DEXAMETHASONE [Concomitant]
  17. RITUXIMAB [Concomitant]

REACTIONS (4)
  - HAEMOLYTIC URAEMIC SYNDROME [None]
  - NO THERAPEUTIC RESPONSE [None]
  - PULMONARY EMBOLISM [None]
  - THROMBOCYTOPENIA [None]
